FAERS Safety Report 7442986-7 (Version None)
Quarter: 2011Q2

REPORT INFORMATION
  Report Type: 
  Country: None (occurrence: None)
  Receive Date: 20110425
  Receipt Date: 20110425
  Transmission Date: 20111010
  Serious: No
  Sender: FDA-Public Use
  Company Number: None

PATIENT
  Age: 19 Year
  Sex: Male
  Weight: 81.6475 kg

DRUGS (1)
  1. MINOCYCLINE HCL [Suspect]
     Indication: ACNE
     Dosage: 100 MG 2 TIMES DAILY PO
     Route: 048

REACTIONS (3)
  - ALOPECIA [None]
  - VISUAL IMPAIRMENT [None]
  - COLITIS ULCERATIVE [None]
